FAERS Safety Report 8163671-2 (Version None)
Quarter: 2012Q1

REPORT INFORMATION
  Report Type: 
  Country: None (occurrence: None)
  Receive Date: 20120224
  Receipt Date: 20120220
  Transmission Date: 20120608
  Serious: Yes (Other)
  Sender: FDA-Public Use
  Company Number: US-BAYER-2012-017213

PATIENT
  Sex: Male

DRUGS (1)
  1. SARGRAMOSTIM [Suspect]
     Dosage: UNK
     Dates: end: 20120201

REACTIONS (1)
  - NEOPLASM MALIGNANT [None]
